FAERS Safety Report 6689322 (Version 4)
Quarter: 2013Q4

REPORT INFORMATION
  Report Type: Spontaneous
  Country: US (occurrence: US)
  Receive Date: 20080702
  Receipt Date: 20131016
  Transmission Date: 20140711
  Serious: Yes (Life-Threatening, Other)
  Sender: FDA-Public Use
  Company Number: US-JNJFOC-20080606791

PATIENT
  Age: 41 Year
  Sex: Female
  Weight: 71.22 kg

DRUGS (4)
  1. REMICADE [Suspect]
     Indication: CROHN^S DISEASE
     Route: 042
     Dates: start: 20051025, end: 20080624
  2. AZATHIOPRINE [Concomitant]
     Indication: CROHN^S DISEASE
     Dates: start: 20020924, end: 20080624
  3. PRILOSEC [Concomitant]
  4. QUESTRAN [Concomitant]

REACTIONS (1)
  - Diffuse large B-cell lymphoma stage IV [Recovered/Resolved]
